FAERS Safety Report 8829502 (Version 1)
Quarter: 2012Q4

REPORT INFORMATION
  Report Type: 
  Country: US (occurrence: US)
  Receive Date: 20121008
  Receipt Date: 20121008
  Transmission Date: 20130627
  Serious: No
  Sender: FDA-Public Use
  Company Number: US-TEVA-341212USA

PATIENT
  Age: 6 Year
  Sex: Male

DRUGS (2)
  1. QVAR [Suspect]
     Route: 055
  2. MONTELUKAST [Suspect]
     Dosage: 5 Milligram Daily;

REACTIONS (1)
  - Abnormal behaviour [Unknown]
